FAERS Safety Report 5662849-7 (Version None)
Quarter: 2008Q1

REPORT INFORMATION
  Report Type: 
  Country: None (occurrence: None)
  Receive Date: 20080307
  Receipt Date: 20080221
  Transmission Date: 20080703
  Serious: Yes (Other)
  Sender: FDA-Public Use
  Company Number: 2007PV033249

PATIENT
  Age: 54 Year
  Sex: Female

DRUGS (7)
  1. SYMLIN [Suspect]
     Indication: TYPE 1 DIABETES MELLITUS
     Dosage: 120 MCG; BID; SC, 60 MCG; ; SC, 45 MCG; ; SC, 30 MCG; ; SC, 15 MCG; ; SC
     Route: 058
     Dates: start: 20070101, end: 20070101
  2. SYMLIN [Suspect]
     Indication: TYPE 1 DIABETES MELLITUS
     Dosage: 120 MCG; BID; SC, 60 MCG; ; SC, 45 MCG; ; SC, 30 MCG; ; SC, 15 MCG; ; SC
     Route: 058
     Dates: start: 20070101, end: 20070101
  3. SYMLIN [Suspect]
     Indication: TYPE 1 DIABETES MELLITUS
     Dosage: 120 MCG; BID; SC, 60 MCG; ; SC, 45 MCG; ; SC, 30 MCG; ; SC, 15 MCG; ; SC
     Route: 058
     Dates: start: 20070501, end: 20070101
  4. SYMLIN [Suspect]
     Indication: TYPE 1 DIABETES MELLITUS
     Dosage: 120 MCG; BID; SC, 60 MCG; ; SC, 45 MCG; ; SC, 30 MCG; ; SC, 15 MCG; ; SC
     Route: 058
     Dates: start: 20070528, end: 20070501
  5. SYMLIN [Suspect]
     Indication: TYPE 1 DIABETES MELLITUS
     Dosage: 120 MCG; BID; SC, 60 MCG; ; SC, 45 MCG; ; SC, 30 MCG; ; SC, 15 MCG; ; SC
     Route: 058
     Dates: start: 20070719, end: 20071101
  6. HUMULIN N [Suspect]
     Indication: TYPE 1 DIABETES MELLITUS
     Dosage: ; BID; SC
     Route: 058
  7. HUMALOG [Suspect]
     Indication: TYPE 1 DIABETES MELLITUS
     Dosage: ; QD; SC
     Route: 058

REACTIONS (5)
  - BLOOD GLUCOSE INCREASED [None]
  - DRUG INEFFECTIVE [None]
  - GLYCOSYLATED HAEMOGLOBIN INCREASED [None]
  - HYPOGLYCAEMIC UNCONSCIOUSNESS [None]
  - PHARMACEUTICAL PRODUCT COMPLAINT [None]
